FAERS Safety Report 12313924 (Version 1)
Quarter: 2016Q2

REPORT INFORMATION
  Report Type: Spontaneous
  Country: US (occurrence: US)
  Receive Date: 20160428
  Receipt Date: 20160428
  Transmission Date: 20160815
  Serious: No
  Sender: FDA-Public Use
  Company Number: US-BAUSCH-BL-2016-003010

PATIENT
  Age: 80 Year
  Sex: Female
  Weight: 71.73 kg

DRUGS (5)
  1. TYLENOL [Concomitant]
     Active Substance: ACETAMINOPHEN
     Indication: PAIN
     Dosage: AS NEEDED
     Route: 048
  2. LOTEMAX [Suspect]
     Active Substance: LOTEPREDNOL ETABONATE
     Indication: EYE INFLAMMATION
     Route: 047
     Dates: start: 2003, end: 2015
  3. REFRESH OPTIVE (PRESERVATIVE FREE) [Concomitant]
     Indication: DRY EYE
     Dosage: 2 TO 3 TIMES DAILY IN BOTH EYES
     Route: 047
  4. BACITRACIN EYE DROPS [Concomitant]
     Indication: BLEPHARITIS
     Dosage: 2 TO 3 TIMES DAILY IN BOTH EYES
     Route: 047
     Dates: start: 2003, end: 2015
  5. ADVIL [Concomitant]
     Active Substance: IBUPROFEN
     Indication: PAIN
     Dosage: AS NEEDED
     Route: 048

REACTIONS (3)
  - Hypersensitivity [Recovering/Resolving]
  - Heart rate increased [Recovering/Resolving]
  - Intraocular pressure increased [Recovering/Resolving]

NARRATIVE: CASE EVENT DATE: 201501
